FAERS Safety Report 8954354 (Version 1)
Quarter: 2012Q4

REPORT INFORMATION
  Report Type: 
  Country: US (occurrence: US)
  Receive Date: 20121207
  Receipt Date: 20121207
  Transmission Date: 20130627
  Serious: Yes (Death, Other)
  Sender: FDA-Public Use
  Company Number: US-OTSUKA-US-2012-11743

PATIENT
  Sex: Female

DRUGS (1)
  1. SAMSCA [Suspect]
     Indication: PRODUCT USED FOR UNKNOWN INDICATION
     Dosage: UNK
     Dates: start: 201206

REACTIONS (1)
  - Blood bilirubin increased [Fatal]
